FAERS Safety Report 13032811 (Version 1)
Quarter: 2016Q4

REPORT INFORMATION
  Report Type: Spontaneous
  Country: US (occurrence: US)
  Receive Date: 20161215
  Receipt Date: 20161215
  Transmission Date: 20170207
  Serious: No
  Sender: FDA-Public Use
  Company Number: GXBR2016US001850

PATIENT
  Sex: Female

DRUGS (1)
  1. DIFLORASONE [Suspect]
     Active Substance: DIFLORASONE DIACETATE
     Indication: RASH
     Dosage: UNK DF, QD
     Route: 061
     Dates: start: 201601

REACTIONS (5)
  - Skin discolouration [Unknown]
  - Haemorrhage [Unknown]
  - Dry skin [Unknown]
  - Contusion [Unknown]
  - Drug ineffective [Not Recovered/Not Resolved]
